FAERS Safety Report 7127575-6 (Version None)
Quarter: 2010Q4

REPORT INFORMATION
  Report Type: 
  Country: None (occurrence: None)
  Receive Date: 20101129
  Receipt Date: 20101118
  Transmission Date: 20110411
  Serious: Yes (Other)
  Sender: FDA-Public Use
  Company Number: PHHY2010FI78811

PATIENT
  Sex: Female

DRUGS (16)
  1. ACLASTA [Suspect]
     Indication: OSTEOPOROSIS
     Dosage: 5 MG
     Dates: start: 20101109
  2. LANTUS [Concomitant]
     Dosage: 100 IU/ML INJECTIONS
  3. MAREVAN FORTE [Concomitant]
     Dosage: UNK
  4. METOHEXAL [Concomitant]
  5. FURESIS [Concomitant]
  6. ORMOX [Concomitant]
  7. HIPEKSAL [Concomitant]
  8. RETAFER [Concomitant]
  9. KALEORID [Concomitant]
  10. KALCIPOS-D MITE [Concomitant]
  11. PANTOPRAZOLE [Concomitant]
  12. ARICEPT [Concomitant]
  13. PANADOL [Concomitant]
  14. PREDNISOLONE [Concomitant]
  15. MIACALCIN [Concomitant]
  16. PARANOVA [Concomitant]
     Dosage: 200IU/DOS NASAL SPRAY

REACTIONS (8)
  - ATRIAL FIBRILLATION [None]
  - MEMORY IMPAIRMENT [None]
  - NASAL CONGESTION [None]
  - NAUSEA [None]
  - OCULAR HYPERAEMIA [None]
  - PYREXIA [None]
  - TREMOR [None]
  - VOMITING [None]
